FAERS Safety Report 10144743 (Version 1)
Quarter: 2014Q2

REPORT INFORMATION
  Report Type: Spontaneous
  Country: US (occurrence: US)
  Receive Date: 20140430
  Receipt Date: 20140430
  Transmission Date: 20141212
  Serious: No
  Sender: FDA-Public Use
  Company Number: US-SANOFI-AVENTIS-2013SA092181

PATIENT
  Age: 91 Year
  Sex: Female

DRUGS (2)
  1. ENOXAPARIN SODIUM - WINTHROP [Suspect]
     Indication: DEEP VEIN THROMBOSIS
     Route: 051
     Dates: start: 20130811
  2. ALL OTHER THERAPEUTIC PRODUCTS [Suspect]
     Route: 065

REACTIONS (8)
  - Skin disorder [Not Recovered/Not Resolved]
  - Generalised erythema [Not Recovered/Not Resolved]
  - Contusion [Not Recovered/Not Resolved]
  - Injection site pain [Not Recovered/Not Resolved]
  - Urticaria [Not Recovered/Not Resolved]
  - Rash [Not Recovered/Not Resolved]
  - Pruritus [Not Recovered/Not Resolved]
  - Burning sensation [Not Recovered/Not Resolved]
